FAERS Safety Report 10543341 (Version 1)
Quarter: 2014Q4

REPORT INFORMATION
  Report Type: Spontaneous
  Country: US (occurrence: None)
  Receive Date: 20141010
  Receipt Date: 20141010
  Transmission Date: 20150529
  Serious: Yes (Other)
  Sender: FDA-Public Use
  Company Number: 163-POMAL-14070490

PATIENT
  Age: 74 Year
  Sex: Female
  Weight: 51.71 kg

DRUGS (22)
  1. VENLAFAXINE HCL [Concomitant]
     Active Substance: VENLAFAXINE HYDROCHLORIDE
  2. CLARITHROMYCIN. [Concomitant]
     Active Substance: CLARITHROMYCIN
  3. ASTEPRO (AZELASTINE HYDROCHLORIDE) [Concomitant]
  4. VALACYCLOVIR (VALACICLOVIR HYDROCHLORIDE) [Concomitant]
  5. FUROSEMIDE. [Concomitant]
     Active Substance: FUROSEMIDE
  6. ALBUTEROL (SALBUTAMOL) [Concomitant]
     Active Substance: ALBUTEROL
  7. POMALYST [Suspect]
     Active Substance: POMALIDOMIDE
     Indication: PLASMA CELL MYELOMA
     Dosage: 2 MG, 21 IN 28 D, PO
     Route: 048
     Dates: start: 20140110
  8. DEXAMETHASONE (DEXAMETHASONE) (UNKNOWN) [Suspect]
     Active Substance: DEXAMETHASONE
     Indication: PRODUCT USED FOR UNKNOWN INDICATION
  9. MULTIVITAMINS [Concomitant]
     Active Substance: VITAMINS
  10. VITAMIN B-12 (CYANOCOBALAMIN) [Concomitant]
  11. HYDROCODONE [Concomitant]
     Active Substance: HYDROCODONE
  12. ROPINIROLE HCL (ROPINIROLE HYDROCHLORIDE) [Concomitant]
  13. GABAPENTIN. [Concomitant]
     Active Substance: GABAPENTIN
  14. LEVOFLOXACIN. [Concomitant]
     Active Substance: LEVOFLOXACIN
  15. ASPIRIN (ACETYLSALICYLIC ACID) [Concomitant]
     Active Substance: ASPIRIN
  16. VORICONAZOLE. [Concomitant]
     Active Substance: VORICONAZOLE
  17. IMODIUM [Concomitant]
     Active Substance: LOPERAMIDE HYDROCHLORIDE
  18. MAGNESIUM [Concomitant]
     Active Substance: MAGNESIUM
  19. IMMUNOGLOBULIN [Concomitant]
     Active Substance: HUMAN IMMUNOGLOBULIN G
  20. FLORASTOR (SACCHAROMYCES BOULARDII) [Concomitant]
  21. LISINOPRIL. [Concomitant]
     Active Substance: LISINOPRIL
  22. METOPROLOL [Concomitant]
     Active Substance: METOPROLOL

REACTIONS (5)
  - Visual impairment [None]
  - Hypersensitivity [None]
  - Drug dose omission [None]
  - Eye swelling [None]
  - Abdominal distension [None]

NARRATIVE: CASE EVENT DATE: 201401
